FAERS Safety Report 9399240 (Version 1)
Quarter: 2013Q3

REPORT INFORMATION
  Report Type: Spontaneous
  Country: US (occurrence: US)
  Receive Date: 20130715
  Receipt Date: 20130715
  Transmission Date: 20140515
  Serious: Yes (Other)
  Sender: FDA-Public Use
  Company Number: US-RB-055726-13

PATIENT
  Age: 17 Year
  Sex: Male

DRUGS (1)
  1. DELSYM ADULT ORANGE [Suspect]
     Indication: DRUG ABUSE
     Dosage: DRANK 2/3 OF A 5 OUNCE BOTTLE
     Route: 048

REACTIONS (2)
  - Intentional drug misuse [Unknown]
  - Intentional overdose [Unknown]
